FAERS Safety Report 14870650 (Version 1)
Quarter: 2018Q2

REPORT INFORMATION
  Report Type: Spontaneous
  Country: US (occurrence: US)
  Receive Date: 20180424
  Receipt Date: 20180424
  Transmission Date: 20180711
  Serious: Yes (Life-Threatening, Hospitalization, Disabling)
  Sender: FDA-Public Use
  Company Number: None

PATIENT
  Age: 38 Year
  Sex: Female
  Weight: 83.91 kg

DRUGS (2)
  1. NEXPLANON [Suspect]
     Active Substance: ETONOGESTREL
     Indication: CONTRACEPTION
     Dosage: ?          QUANTITY:1 INSERT;OTHER FREQUENCY:EVERY THREE YEARS;OTHER ROUTE:GIVEN INTO/UNDER THE SKIN?
     Dates: start: 20150529, end: 20180419
  2. PREDNISONE. [Concomitant]
     Active Substance: PREDNISONE

REACTIONS (8)
  - Migraine [None]
  - Dizziness [None]
  - Pain [None]
  - Fatigue [None]
  - Quality of life decreased [None]
  - Anxiety [None]
  - Palpitations [None]
  - Deafness [None]

NARRATIVE: CASE EVENT DATE: 20170801
